FAERS Safety Report 23866822 (Version 2)
Quarter: 2024Q2

REPORT INFORMATION
  Report Type: Report from Study
  Country: US (occurrence: US)
  Receive Date: 20240517
  Receipt Date: 20240603
  Transmission Date: 20240716
  Serious: Yes (Other)
  Sender: FDA-Public Use
  Company Number: US-ARGENX-2024-ARGX-US003241

PATIENT

DRUGS (1)
  1. VYVGART [Suspect]
     Active Substance: EFGARTIGIMOD ALFA-FCAB
     Indication: Myasthenia gravis
     Dosage: 1200 MG, 1/WEEK, 400 MG/20 ML
     Route: 042
     Dates: start: 202302

REACTIONS (3)
  - Myasthenia gravis [Not Recovered/Not Resolved]
  - Anxiety [Unknown]
  - Fatigue [Unknown]
